FAERS Safety Report 10257278 (Version 2)
Quarter: 2014Q3

REPORT INFORMATION
  Report Type: Other
  Country: GB (occurrence: GB)
  Receive Date: 20140625
  Receipt Date: 20140923
  Transmission Date: 20150326
  Serious: Yes (Hospitalization, Other)
  Sender: FDA-Public Use
  Company Number: GB-LUPIN PHARMACEUTICALS INC.-E2B_00002180

PATIENT
  Age: 90 Year
  Sex: Female

DRUGS (3)
  1. FOLIC ACID. [Concomitant]
     Active Substance: FOLIC ACID
     Indication: PRODUCT USED FOR UNKNOWN INDICATION
     Route: 065
  2. CLARITHROMYCIN. [Suspect]
     Active Substance: CLARITHROMYCIN
     Indication: PROPHYLAXIS
     Route: 065
     Dates: start: 20130804
  3. SIMVASTATIN. [Interacting]
     Active Substance: SIMVASTATIN
     Indication: PROPHYLAXIS
     Route: 048

REACTIONS (8)
  - Off label use [Unknown]
  - Renal disorder [Unknown]
  - Renal failure [Unknown]
  - Blood creatinine increased [Unknown]
  - Muscular weakness [Unknown]
  - Chromaturia [Unknown]
  - Drug interaction [Unknown]
  - Mobility decreased [Recovered/Resolved]

NARRATIVE: CASE EVENT DATE: 20130808
